FAERS Safety Report 8084282-3 (Version None)
Quarter: 2012Q1

REPORT INFORMATION
  Report Type: 
  Country: None (occurrence: None)
  Receive Date: 20120128
  Receipt Date: 20110308
  Transmission Date: 20120608
  Serious: Yes (Hospitalization, Other)
  Sender: FDA-Public Use
  Company Number: US-ABBOTT-11P-163-0709888-00

PATIENT
  Sex: Female
  Weight: 63.106 kg

DRUGS (3)
  1. ASACOL [Concomitant]
     Indication: CROHN'S DISEASE
  2. HUMIRA [Suspect]
     Indication: CROHN'S DISEASE
     Dates: start: 20101206, end: 20101206
  3. XANAX [Concomitant]
     Indication: ANXIETY

REACTIONS (3)
  - INFECTION [None]
  - COLECTOMY [None]
  - ABDOMINAL PAIN [None]
